FAERS Safety Report 7963551 (Version 3)
Quarter: 2012Q4

REPORT INFORMATION
  Report Type: 
  Country: US (occurrence: US)
  Receive Date: 20110527
  Receipt Date: 20121219
  Transmission Date: 20130627
  Serious: Yes (Other)
  Sender: FDA-Public Use
  Company Number: US-MYLANLABS-2011S1007414

PATIENT
  Age: 70 Year
  Sex: Male

DRUGS (10)
  1. LEVETIRACETAM [Suspect]
     Indication: CONVULSION
     Route: 048
     Dates: start: 201101, end: 201105
  2. LEVETIRACETAM [Suspect]
     Indication: CONVULSION
     Route: 048
     Dates: start: 20110603
  3. LEVETIRACETAM [Suspect]
     Indication: CONVULSION
     Route: 048
     Dates: start: 201105, end: 20110603
  4. DILANTIN [Concomitant]
     Dates: start: 1991
  5. DILANTIN [Concomitant]
     Dates: start: 1991
  6. AVAPRO [Concomitant]
  7. LIPITOR [Concomitant]
  8. KLONOPIN [Concomitant]
  9. MULTIVITAMIN [Concomitant]
  10. ASPIRIN [Concomitant]

REACTIONS (2)
  - Drug ineffective [Not Recovered/Not Resolved]
  - Convulsion [Not Recovered/Not Resolved]
